FAERS Safety Report 18850904 (Version 1)
Quarter: 2021Q1

REPORT INFORMATION
  Report Type: Spontaneous
  Country: US (occurrence: US)
  Receive Date: 20210204
  Receipt Date: 20210204
  Transmission Date: 20210420
  Serious: No
  Sender: FDA-Public Use
  Company Number: US-PURDUE-USA-2021-0198478

PATIENT
  Sex: Female

DRUGS (1)
  1. LIDOCAINE. [Suspect]
     Active Substance: LIDOCAINE
     Indication: NEURALGIA
     Dosage: 5 %, DAILY
     Route: 062
     Dates: start: 202101

REACTIONS (5)
  - Wrong technique in product usage process [Unknown]
  - Muscular weakness [Not Recovered/Not Resolved]
  - Product adhesion issue [Unknown]
  - Loss of personal independence in daily activities [Unknown]
  - Pain [Unknown]
